FAERS Safety Report 14350542 (Version 1)
Quarter: 2018Q1

REPORT INFORMATION
  Report Type: Spontaneous
  Country: US (occurrence: US)
  Receive Date: 20180103
  Receipt Date: 20180103
  Transmission Date: 20180509
  Serious: Yes (Hospitalization)
  Sender: FDA-Public Use
  Company Number: US-SA-2017SA269047

PATIENT
  Age: 72 Year
  Sex: Female

DRUGS (2)
  1. LANTUS SOLOSTAR [Suspect]
     Active Substance: INSULIN GLARGINE
     Indication: TYPE 2 DIABETES MELLITUS
     Dosage: 35U IN AM AND 50U IN PM
     Route: 051
     Dates: start: 2000
  2. SOLOSTAR [Suspect]
     Active Substance: DEVICE
     Indication: TYPE 2 DIABETES MELLITUS
     Dates: start: 2000

REACTIONS (9)
  - Pain [Recovering/Resolving]
  - Device issue [Unknown]
  - Gastrointestinal disorder [Unknown]
  - Grip strength decreased [Recovering/Resolving]
  - Blood glucose increased [Unknown]
  - Product use issue [Unknown]
  - Nausea [Unknown]
  - Vomiting [Unknown]
  - Wrong technique in device usage process [Unknown]
